FAERS Safety Report 21830669 (Version 3)
Quarter: 2023Q4

REPORT INFORMATION
  Report Type: Spontaneous
  Country: US (occurrence: US)
  Receive Date: 20230106
  Receipt Date: 20231218
  Transmission Date: 20240110
  Serious: Yes (Other)
  Sender: FDA-Public Use
  Company Number: US-PFIZER INC-202300003986

PATIENT
  Age: 69 Year
  Sex: Female
  Weight: 82.55 kg

DRUGS (4)
  1. IBRANCE [Suspect]
     Active Substance: PALBOCICLIB
     Indication: Breast cancer
     Dosage: 125 MG, CYCLIC (BIG OBLONG PILL, TABLET, ONCE A DAY FOR 3 WEEKS ON AND ONE WEEK OFF)
     Dates: start: 20220123, end: 2022
  2. IBRANCE [Suspect]
     Active Substance: PALBOCICLIB
     Dosage: 100 MG, CYCLIC (FOR 21 DAYS THEN 7)
     Route: 048
     Dates: start: 202201
  3. ANASTROZOLE [Concomitant]
     Active Substance: ANASTROZOLE
     Indication: Neoplasm
     Dosage: 1 MG, 1X/DAY (1MG TENY TINY TABLET ONE A DAY)
     Dates: start: 202201
  4. MINERALS\VITAMINS [Concomitant]
     Active Substance: MINERALS\VITAMINS
     Indication: Macular degeneration
     Dosage: UNK, 2X/DAY (AREDS 2, ONE TABLET TWICE A DAY)
     Dates: start: 2020

REACTIONS (5)
  - Dental restoration failure [Recovered/Resolved]
  - Tooth loss [Recovered/Resolved]
  - Red blood cell count decreased [Not Recovered/Not Resolved]
  - White blood cell count decreased [Not Recovered/Not Resolved]
  - Hypoaesthesia [Unknown]

NARRATIVE: CASE EVENT DATE: 20220101
